FAERS Safety Report 21224040 (Version 1)
Quarter: 2022Q3

REPORT INFORMATION
  Report Type: Spontaneous
  Country: US (occurrence: US)
  Receive Date: 20220817
  Receipt Date: 20220817
  Transmission Date: 20221027
  Serious: No
  Sender: FDA-Public Use
  Company Number: US-SA-2021MK000135

PATIENT
  Sex: Female

DRUGS (2)
  1. AFREZZA [Suspect]
     Active Substance: INSULIN HUMAN
     Indication: Product used for unknown indication
     Dates: start: 20210902
  2. INSULIN NOS [Concomitant]
     Active Substance: INSULIN NOS
     Indication: Product used for unknown indication

REACTIONS (1)
  - Blood glucose increased [Unknown]

NARRATIVE: CASE EVENT DATE: 20210902
